FAERS Safety Report 8587478 (Version 3)
Quarter: 2012Q4

REPORT INFORMATION
  Report Type: 
  Country: US (occurrence: US)
  Receive Date: 20120531
  Receipt Date: 20121022
  Transmission Date: 20130627
  Serious: Yes (Hospitalization)
  Sender: FDA-Public Use
  Company Number: US-BAYER-2012-052592

PATIENT
  Age: 45 Year
  Sex: Female

DRUGS (15)
  1. YAZ [Suspect]
     Indication: ENDOMETRIOSIS
     Dosage: UNK
     Dates: start: 201105, end: 201109
  2. CITALOPRAM [Concomitant]
     Indication: DEPRESSION
     Dosage: 20 mg, once a day
     Route: 048
  3. GABAPENTIN [Concomitant]
     Dosage: 300 mg, 600 mg 2 times a day
     Route: 048
  4. METHOCARBAMOL [Concomitant]
     Dosage: take 375 mg by mouth every 8 hours as needed
     Route: 048
  5. TRAMADOL [Concomitant]
     Dosage: 25 mg, by mouth every 6 hours as needed
     Route: 048
  6. MEPERIDINE [Concomitant]
     Dosage: 25 mg, by mouth every 6 hours as needed
     Route: 048
  7. DIPHENHYDRAMINE [Concomitant]
     Dosage: 50 mg, by mouth every bedtime as needed
     Route: 048
  8. DOXYLAMINE SUCCINATE [Concomitant]
     Dosage: 25 mg, by mouth every bedtime as needed
     Route: 048
  9. OMEGA-3 FATTY ACIDS [Concomitant]
     Dosage: 25 mg, by mouth every bedtime as needed
     Route: 048
  10. MULTIVITAMIN [Concomitant]
     Dosage: 1 tablet by mouth once a day
     Route: 048
  11. COLECALCIFEROL [Concomitant]
     Dosage: 1200 units by mouth once a day
     Route: 048
  12. B-COMPLEX [VITAMIN B NOS] [Concomitant]
     Dosage: by mouth once a day
     Route: 048
  13. IBUPROFEN [Concomitant]
     Dosage: 800 mg, BID
     Route: 048
  14. FENTANYL [Concomitant]
  15. AVELOX [Concomitant]
     Indication: PNEUMONIA

REACTIONS (6)
  - Pulmonary embolism [None]
  - Injury [None]
  - Pain [None]
  - Emotional distress [None]
  - General physical health deterioration [None]
  - Anxiety [None]
